FAERS Safety Report 4880708-4 (Version None)
Quarter: 2006Q1

REPORT INFORMATION
  Report Type: 
  Country: None (occurrence: None)
  Receive Date: 20060113
  Receipt Date: 20051005
  Transmission Date: 20060701
  Serious: Yes (Disabling)
  Sender: FDA-Public Use
  Company Number: US-MERCK-0510USA04282

PATIENT
  Age: 33 Year
  Sex: Male
  Weight: 91 kg

DRUGS (5)
  1. HYDROCODONE HYDROCHLORIDE [Concomitant]
     Route: 065
  2. CYCLOBENZAPRINE HYDROCHLORIDE [Concomitant]
     Route: 065
  3. WELLBUTRIN [Suspect]
     Route: 065
  4. VIOXX [Suspect]
     Indication: PAIN
     Route: 048
     Dates: start: 20030617, end: 20040502
  5. EFFEXOR [Suspect]
     Route: 065

REACTIONS (11)
  - ALCOHOLISM [None]
  - ANXIETY [None]
  - BACK DISORDER [None]
  - CHEST PAIN [None]
  - DEPRESSION [None]
  - DYSPNOEA [None]
  - MIGRAINE [None]
  - PAIN [None]
  - PANIC ATTACK [None]
  - SUICIDAL IDEATION [None]
  - WEIGHT INCREASED [None]
